FAERS Safety Report 26150741 (Version 1)
Quarter: 2025Q4

REPORT INFORMATION
  Report Type: Report from Study
  Country: US (occurrence: US)
  Receive Date: 20251212
  Receipt Date: 20251212
  Transmission Date: 20260118
  Serious: Yes (Hospitalization)
  Sender: BIOGEN
  Company Number: US-BIOGEN-2024BI01252431

PATIENT
  Age: 67 Year
  Sex: Female

DRUGS (1)
  1. TYSABRI [Suspect]
     Active Substance: NATALIZUMAB
     Indication: Multiple sclerosis
     Dates: start: 20200604, end: 20250924

REACTIONS (3)
  - Gastrointestinal anastomotic stenosis [Unknown]
  - Stoma site ulcer [Recovered/Resolved]
  - Defaecation disorder [Unknown]

NARRATIVE: CASE EVENT DATE: 20230101
